FAERS Safety Report 15805409 (Version 2)
Quarter: 2019Q2

REPORT INFORMATION
  Report Type: Spontaneous
  Country: US (occurrence: US)
  Receive Date: 20190110
  Receipt Date: 20190416
  Transmission Date: 20190711
  Serious: Yes (Other)
  Sender: FDA-Public Use
  Company Number: US-ASTRAZENECA-2018SF47753

PATIENT
  Age: 16042 Day
  Sex: Female
  Weight: 61.2 kg

DRUGS (30)
  1. HYDROCODONE [Concomitant]
     Active Substance: HYDROCODONE
  2. TRAMADOL. [Concomitant]
     Active Substance: TRAMADOL
  3. PROMETHAZINE [Concomitant]
     Active Substance: PROMETHAZINE\PROMETHAZINE HYDROCHLORIDE
  4. PANTOPRAZOLE [Concomitant]
     Active Substance: PANTOPRAZOLE
  5. GABAPENTIN. [Concomitant]
     Active Substance: GABAPENTIN
  6. TEMAZEPAM. [Concomitant]
     Active Substance: TEMAZEPAM
  7. SENSIPAR [Concomitant]
     Active Substance: CINACALCET HYDROCHLORIDE
  8. LEXAPRO [Concomitant]
     Active Substance: ESCITALOPRAM OXALATE
  9. NEXIUM [Suspect]
     Active Substance: ESOMEPRAZOLE MAGNESIUM
     Route: 048
     Dates: start: 2011, end: 2017
  10. PREDNISONE. [Concomitant]
     Active Substance: PREDNISONE
  11. OXYCODONE [Concomitant]
     Active Substance: OXYCODONE
  12. LOSARTAN. [Concomitant]
     Active Substance: LOSARTAN
  13. CARVEDILOL. [Concomitant]
     Active Substance: CARVEDILOL
  14. CYCLOBENZAPRINE. [Concomitant]
     Active Substance: CYCLOBENZAPRINE
  15. PRILOSEC [Suspect]
     Active Substance: OMEPRAZOLE MAGNESIUM
     Route: 048
  16. ZOLPIDEM [Concomitant]
     Active Substance: ZOLPIDEM\ZOLPIDEM TARTRATE
  17. AMLODIPINE [Concomitant]
     Active Substance: AMLODIPINE BESYLATE
  18. ELIQUIS [Concomitant]
     Active Substance: APIXABAN
  19. PROMETHAZINE [Concomitant]
     Active Substance: PROMETHAZINE\PROMETHAZINE HYDROCHLORIDE
  20. AZITHROMYCIN ANHYDROUS. [Concomitant]
     Active Substance: AZITHROMYCIN ANHYDROUS
  21. AMOXICILLIN. [Concomitant]
     Active Substance: AMOXICILLIN
  22. MIRTAZAPINE. [Concomitant]
     Active Substance: MIRTAZAPINE
  23. OMEPRAZOLE. [Concomitant]
     Active Substance: OMEPRAZOLE
  24. DOXYCYCLINE. [Concomitant]
     Active Substance: DOXYCYCLINE
  25. ASPIRIN. [Concomitant]
     Active Substance: ASPIRIN
  26. MYCOPHENOLATE SODIUM [Concomitant]
     Active Substance: MYCOPHENOLATE SODIUM
  27. NEXIUM [Suspect]
     Active Substance: ESOMEPRAZOLE MAGNESIUM
     Route: 048
     Dates: start: 20110601
  28. CLONIDINE. [Concomitant]
     Active Substance: CLONIDINE
  29. ESCITALOPRAM [Concomitant]
     Active Substance: ESCITALOPRAM OXALATE
  30. DIAZEPAM. [Concomitant]
     Active Substance: DIAZEPAM

REACTIONS (2)
  - End stage renal disease [Unknown]
  - Renal failure [Not Recovered/Not Resolved]

NARRATIVE: CASE EVENT DATE: 20170824
